FAERS Safety Report 8158017-X (Version None)
Quarter: 2012Q1

REPORT INFORMATION
  Report Type: 
  Country: None (occurrence: None)
  Receive Date: 20120222
  Receipt Date: 20120214
  Transmission Date: 20120608
  Serious: Yes (Hospitalization, Other)
  Sender: FDA-Public Use
  Company Number: PHEH2011US02013

PATIENT
  Sex: Female
  Weight: 54.422 kg

DRUGS (4)
  1. TOBI [Suspect]
     Dosage: 300 MG, TWICE A DAY FOR 28 DAYS, THEN STOP DRUG FOR 28 DAYS
     Dates: start: 20110630
  2. TOBI [Suspect]
     Dosage: 300 MG, TWICE A DAY FOR 28 DAYS, THEN STOP DRUG FOR 28 DAYS
  3. HYDROXYCHLOROQUINE SULFATE [Concomitant]
     Indication: ARTHRITIS
     Dosage: 200 MG, QD
     Route: 048
  4. SINGULAIR [Concomitant]

REACTIONS (9)
  - PSEUDOMONAS INFECTION [None]
  - INCREASED BRONCHIAL SECRETION [None]
  - THROAT IRRITATION [None]
  - UPPER RESPIRATORY TRACT INFECTION [None]
  - BRONCHIAL IRRITATION [None]
  - BRONCHOSPASM [None]
  - COUGH [None]
  - DYSPNOEA [None]
  - DYSPHONIA [None]
